FAERS Safety Report 9984753 (Version 2)
Quarter: 2014Q1

REPORT INFORMATION
  Report Type: Spontaneous
  Country: GB (occurrence: GB)
  Receive Date: 20140307
  Receipt Date: 20140310
  Transmission Date: 20141002
  Serious: Yes (Hospitalization)
  Sender: FDA-Public Use
  Company Number: GB-ABBVIE-14P-167-1209851-00

PATIENT
  Sex: Female

DRUGS (2)
  1. EPILIM CHRONO [Suspect]
     Indication: EPILEPSY
     Dates: start: 201311, end: 201311
  2. EPILIM [Suspect]
     Indication: EPILEPSY
     Dates: end: 201311

REACTIONS (7)
  - Heart rate increased [Recovered/Resolved]
  - Wrong drug administered [Recovered/Resolved]
  - Accidental overdose [Recovered/Resolved]
  - Pain [Recovered/Resolved]
  - Emotional distress [Recovered/Resolved]
  - Confusional state [Recovered/Resolved]
  - Malaise [Recovered/Resolved]
